FAERS Safety Report 6219105-8 (Version None)
Quarter: 2009Q2

REPORT INFORMATION
  Report Type: 
  Country: None (occurrence: None)
  Receive Date: 20090609
  Receipt Date: 20090528
  Transmission Date: 20091009
  Serious: Yes (Hospitalization)
  Sender: FDA-Public Use
  Company Number: FR-PFIZER INC-2009219151

PATIENT
  Age: 82 Year

DRUGS (17)
  1. DALACIN [Suspect]
     Indication: INFECTION
     Dosage: 600 MG, 1X/DAY
     Route: 042
     Dates: start: 20090514, end: 20090514
  2. MINISINTROM [Concomitant]
     Dosage: 1 MG, 1X/DAY
  3. DIOSMINE [Concomitant]
     Dosage: 600 MG, 1X/DAY
  4. STRUCTUM [Concomitant]
     Dosage: 500 MG, 2X/DAY
  5. FENOFIBRATE [Concomitant]
     Dosage: 67 MG, 1X/DAY
  6. STABLON [Concomitant]
     Dosage: 12.5 UNK, 2X/DAY
  7. PRAZEPAM [Concomitant]
     Dosage: 10 MG, 2X/DAY
  8. DIALGIREX [Concomitant]
  9. ATARAX [Concomitant]
     Indication: PREMEDICATION
  10. LYRICA [Concomitant]
     Indication: PREMEDICATION
  11. PARACETAMOL [Concomitant]
  12. ACUPAN [Concomitant]
  13. ACTISKENAN [Concomitant]
  14. TARGOCID [Concomitant]
     Dosage: UNK
  15. VANCOMYCIN [Concomitant]
     Dosage: UNK
     Dates: start: 20090424, end: 20090505
  16. GENTAMICIN [Concomitant]
     Dosage: UNK
     Dates: start: 20090424, end: 20090505
  17. FLAGYL [Concomitant]
     Dosage: UNK
     Dates: start: 20090424, end: 20090505

REACTIONS (2)
  - LIP OEDEMA [None]
  - PRURITUS GENERALISED [None]
